FAERS Safety Report 21369472 (Version 1)
Quarter: 2022Q3

REPORT INFORMATION
  Report Type: Report from Study
  Country: US (occurrence: US)
  Receive Date: 20220923
  Receipt Date: 20220923
  Transmission Date: 20221027
  Serious: Yes (Other)
  Sender: FDA-Public Use
  Company Number: US-MYLANLABS-2022M1095145

PATIENT
  Age: 78 Year
  Sex: Female

DRUGS (3)
  1. PREDNISONE [Suspect]
     Active Substance: PREDNISONE
     Indication: Eosinophilia
     Dosage: 20 MILLIGRAM
     Route: 065
     Dates: start: 20201207
  2. ASPIRIN [Concomitant]
     Active Substance: ASPIRIN
     Indication: Immune tolerance induction
     Dosage: UNK
     Route: 065
  3. ASPIRIN [Concomitant]
     Active Substance: ASPIRIN
     Dosage: 650 MILLIGRAM, BID
     Route: 065
     Dates: start: 2020

REACTIONS (2)
  - Rebound effect [Recovered/Resolved]
  - Eosinophilia [Recovered/Resolved]

NARRATIVE: CASE EVENT DATE: 20201217
